FAERS Safety Report 17474802 (Version 1)
Quarter: 2020Q1

REPORT INFORMATION
  Report Type: Report from Study
  Country: BR (occurrence: BR)
  Receive Date: 20200228
  Receipt Date: 20200228
  Transmission Date: 20200409
  Serious: Yes (Other)
  Sender: FDA-Public Use
  Company Number: BR-JNJFOC-20180330154

PATIENT
  Age: 60 Year
  Sex: Female
  Weight: 90 kg

DRUGS (10)
  1. SIMPONI [Suspect]
     Active Substance: GOLIMUMAB
     Indication: RHEUMATOID ARTHRITIS
     Route: 058
     Dates: start: 20180221
  2. ADDERA D3 [Concomitant]
     Active Substance: CHOLECALCIFEROL
     Route: 065
  3. SERTRALINE [Concomitant]
     Active Substance: SERTRALINE HYDROCHLORIDE
     Indication: PRODUCT USED FOR UNKNOWN INDICATION
     Route: 065
  4. OSTEONUTRI [Concomitant]
     Route: 065
  5. LEFLUNOMIDE. [Concomitant]
     Active Substance: LEFLUNOMIDE
     Route: 065
  6. BEZAFIBRATE [Concomitant]
     Active Substance: BEZAFIBRATE
     Dosage: CEDUR RETARD
  7. ATENOLOL. [Concomitant]
     Active Substance: ATENOLOL
     Route: 065
  8. SIMPONI [Suspect]
     Active Substance: GOLIMUMAB
     Route: 058
     Dates: start: 20190806
  9. LOSARTAN. [Concomitant]
     Active Substance: LOSARTAN
     Route: 065
  10. NESINA [Concomitant]
     Active Substance: ALOGLIPTIN BENZOATE
     Route: 065

REACTIONS (6)
  - Rheumatoid arthritis [Unknown]
  - Sinusitis [Recovering/Resolving]
  - Osteomyelitis [Unknown]
  - Weight increased [Unknown]
  - Influenza [Unknown]
  - Purulence [Not Recovered/Not Resolved]

NARRATIVE: CASE EVENT DATE: 2018
